FAERS Safety Report 4413211-6 (Version None)
Quarter: 2004Q3

REPORT INFORMATION
  Report Type: 
  Country: None (occurrence: None)
  Receive Date: 20040730
  Receipt Date: 20040730
  Transmission Date: 20050211
  Serious: No
  Sender: FDA-Public Use
  Company Number: None

PATIENT
  Age: 46 Year
  Sex: Female
  Weight: 117.028 kg

DRUGS (1)
  1. XIGRIS [Suspect]
     Indication: PNEUMONIA

REACTIONS (2)
  - CONVULSION [None]
  - GASTROINTESTINAL HAEMORRHAGE [None]
